FAERS Safety Report 7148295-8 (Version None)
Quarter: 2010Q4

REPORT INFORMATION
  Report Type: 
  Country: None (occurrence: None)
  Receive Date: 20101209
  Receipt Date: 20101202
  Transmission Date: 20110411
  Serious: Yes (Other)
  Sender: FDA-Public Use
  Company Number: FR-PURDUE-GBR-2010-0007453

PATIENT
  Sex: Male

DRUGS (1)
  1. OXYCONTIN [Suspect]
     Indication: PAIN
     Dosage: UNK
     Route: 048

REACTIONS (6)
  - FEELING ABNORMAL [None]
  - NEGATIVE THOUGHTS [None]
  - PYREXIA [None]
  - RHINORRHOEA [None]
  - SLEEP DISORDER [None]
  - SUICIDAL IDEATION [None]
